FAERS Safety Report 9168585 (Version 4)
Quarter: 2013Q4

REPORT INFORMATION
  Report Type: Spontaneous
  Country: GB (occurrence: None)
  Receive Date: 20130307
  Receipt Date: 20131011
  Transmission Date: 20140711
  Serious: Yes (Other)
  Sender: FDA-Public Use
  Company Number: AUR-APL-2013-01992

PATIENT
  Age: 72 Year
  Sex: Female

DRUGS (3)
  1. ALENDRONIC ACID [Suspect]
     Indication: PRODUCT USED FOR UNKNOWN INDICATION
  2. PREDNISOLONE (PREDNISOLONE) [Suspect]
     Indication: TEMPORAL ARTERITIS
     Dosage: 8 TABLETS A DAY (40 MG, 1D)?
  3. BUSCOPAN (HYOSCINE BUTYLBROMIDE) [Concomitant]

REACTIONS (46)
  - Cushing^s syndrome [None]
  - Headache [None]
  - Abdominal distension [None]
  - Dyspnoea [None]
  - Local swelling [None]
  - Pollakiuria [None]
  - Paraesthesia [None]
  - Visual acuity reduced [None]
  - Weight increased [None]
  - Insomnia [None]
  - Fatigue [None]
  - Memory impairment [None]
  - Disturbance in attention [None]
  - Pain [None]
  - Infection [None]
  - Rectal haemorrhage [None]
  - Frequent bowel movements [None]
  - Tinnitus [None]
  - Tremor [None]
  - Pollakiuria [None]
  - Headache [None]
  - Dizziness [None]
  - Hyperhidrosis [None]
  - Urine odour abnormal [None]
  - Abnormal faeces [None]
  - Skin odour abnormal [None]
  - Eye pain [None]
  - Eye pruritus [None]
  - Joint swelling [None]
  - Onychomadesis [None]
  - Dysgeusia [None]
  - Diverticulitis [None]
  - Increased upper airway secretion [None]
  - Gait disturbance [None]
  - Impaired work ability [None]
  - Economic problem [None]
  - Swelling face [None]
  - Emotional disorder [None]
  - Feeling abnormal [None]
  - Feeling abnormal [None]
  - Extrasystoles [None]
  - Urinary tract infection [None]
  - Drug dose omission [None]
  - Drug hypersensitivity [None]
  - Hearing impaired [None]
  - Throat irritation [None]
